FAERS Safety Report 7096599-X (Version None)
Quarter: 2010Q4

REPORT INFORMATION
  Report Type: 
  Country: None (occurrence: None)
  Receive Date: 20101111
  Receipt Date: 20101109
  Transmission Date: 20110411
  Serious: Yes (Life-Threatening)
  Sender: FDA-Public Use
  Company Number: DE-JNJFOC-20101103822

PATIENT
  Age: 9 Decade
  Sex: Male

DRUGS (1)
  1. ABCIXIMAB [Suspect]
     Indication: MYOCARDIAL INFARCTION
     Route: 022

REACTIONS (2)
  - CARDIAC PERFORATION [None]
  - INCORRECT ROUTE OF DRUG ADMINISTRATION [None]
